FAERS Safety Report 6143326-6 (Version None)
Quarter: 2009Q2

REPORT INFORMATION
  Report Type: 
  Country: None (occurrence: None)
  Receive Date: 20090403
  Receipt Date: 20090330
  Transmission Date: 20091009
  Serious: Yes (Other)
  Sender: FDA-Public Use
  Company Number: B0565416A

PATIENT
  Sex: Male
  Weight: 27 kg

DRUGS (4)
  1. RELENZA [Suspect]
     Indication: INFLUENZA
     Dosage: 10MG TWICE PER DAY
     Route: 055
     Dates: start: 20090311, end: 20090312
  2. BROCIN [Concomitant]
     Indication: COUGH
     Route: 048
  3. HUSCODE [Concomitant]
     Indication: COUGH
     Route: 048
  4. CALONAL [Concomitant]
     Indication: ANTIPYRESIS
     Route: 048

REACTIONS (4)
  - ABNORMAL BEHAVIOUR [None]
  - HALLUCINATION, AUDITORY [None]
  - ILLUSION [None]
  - PHOBIA [None]
